FAERS Safety Report 5745144-7 (Version None)
Quarter: 2008Q2

REPORT INFORMATION
  Report Type: 
  Country: None (occurrence: None)
  Receive Date: 20080521
  Receipt Date: 20080513
  Transmission Date: 20081010
  Serious: Yes (Other)
  Sender: FDA-Public Use
  Company Number: PHHY2008JP08076

PATIENT
  Age: 73 Year
  Sex: Male

DRUGS (6)
  1. LOCHOL [Suspect]
     Dosage: 30MG, QD
     Route: 048
     Dates: start: 20080428
  2. LIPITOR [Concomitant]
     Route: 048
     Dates: start: 20080427
  3. PHENOBAL [Concomitant]
  4. SELENICA-R [Concomitant]
  5. SERMION [Concomitant]
  6. PLAVIX [Concomitant]

REACTIONS (1)
  - BLOOD POTASSIUM INCREASED [None]
